FAERS Safety Report 8857252 (Version 1)
Quarter: 2012Q4

REPORT INFORMATION
  Report Type: 
  Country: BR (occurrence: BR)
  Receive Date: 20121024
  Receipt Date: 20121024
  Transmission Date: 20130627
  Serious: Yes (Other)
  Sender: FDA-Public Use
  Company Number: PHHY2012BR094774

PATIENT
  Age: 46 Year
  Sex: Female
  Weight: 60 kg

DRUGS (5)
  1. DIOVAN [Suspect]
     Indication: DIURETIC THERAPY
     Dosage: 1 DF, QD
     Dates: start: 1990
  2. DIOVAN AMLO FIX [Suspect]
     Indication: HYPERTENSION
     Dosage: 1 DF (160/5 mg), BID
     Route: 048
  3. ARELIX [Suspect]
  4. CALTRATE + D /01721501/ [Concomitant]
     Indication: MINERAL SUPPLEMENTATION
     Dosage: 1 DF, Daily
     Route: 048
  5. SIMVASTATIN [Concomitant]
     Indication: BLOOD CHOLESTEROL
     Dosage: 1 DF (20 mg), QD (at lunch)
     Route: 048

REACTIONS (9)
  - Fall [Recovered/Resolved]
  - Tendon rupture [Recovered/Resolved]
  - Joint dislocation [Recovered/Resolved]
  - Blood pressure increased [Recovered/Resolved]
  - Dry throat [Recovering/Resolving]
  - Neck pain [Recovering/Resolving]
  - Malaise [Recovered/Resolved]
  - Dry mouth [Recovering/Resolving]
  - Tachycardia [Recovering/Resolving]
